FAERS Safety Report 19729842 (Version 1)
Quarter: 2021Q3

REPORT INFORMATION
  Report Type: Spontaneous
  Country: US (occurrence: US)
  Receive Date: 20210821
  Receipt Date: 20210821
  Transmission Date: 20211014
  Serious: No
  Sender: FDA-Public Use
  Company Number: US-HETERO-HET2021US01621

PATIENT
  Age: 95 Year
  Sex: Female

DRUGS (1)
  1. ROSUVASTATIN. [Suspect]
     Active Substance: ROSUVASTATIN
     Indication: BLOOD CHOLESTEROL
     Dosage: 20 MILLIGRAM, ONE TABLET A DAY QHS
     Route: 065

REACTIONS (1)
  - Dry mouth [Unknown]
